FAERS Safety Report 16031650 (Version 1)
Quarter: 2019Q1

REPORT INFORMATION
  Report Type: Spontaneous
  Country: US (occurrence: US)
  Receive Date: 20190304
  Receipt Date: 20190304
  Transmission Date: 20190418
  Serious: Yes (Other)
  Sender: FDA-Public Use
  Company Number: US-GEHC-2019CSU001210

PATIENT
  Age: 77 Year
  Sex: Male
  Weight: 68.3 kg

DRUGS (2)
  1. OMNIPAQUE [Suspect]
     Active Substance: IOHEXOL
     Indication: COMPUTERISED TOMOGRAM
     Dosage: UNK, SINGLE
     Route: 065
     Dates: start: 20181206, end: 20181206
  2. OMNIPAQUE [Suspect]
     Active Substance: IOHEXOL
     Indication: HEPATOCELLULAR CARCINOMA

REACTIONS (1)
  - Anaphylactic reaction [Recovered/Resolved]

NARRATIVE: CASE EVENT DATE: 20181206
